FAERS Safety Report 9290009 (Version 1)
Quarter: 2013Q2

REPORT INFORMATION
  Report Type: Spontaneous
  Country: US (occurrence: None)
  Receive Date: 20130514
  Receipt Date: 20130514
  Transmission Date: 20140414
  Serious: No
  Sender: FDA-Public Use
  Company Number: None

PATIENT
  Age: 60 Year
  Sex: Female

DRUGS (3)
  1. ISONIAZID [Suspect]
     Dates: start: 20111221, end: 20120120
  2. METFORMIN [Concomitant]
  3. ASA [Concomitant]

REACTIONS (2)
  - Liver injury [None]
  - Chronic hepatitis [None]
